FAERS Safety Report 12856471 (Version 1)
Quarter: 2016Q4

REPORT INFORMATION
  Report Type: Spontaneous
  Country: US (occurrence: US)
  Receive Date: 20161018
  Receipt Date: 20161018
  Transmission Date: 20170207
  Serious: Yes (Other)
  Sender: FDA-Public Use
  Company Number: US-TARO PHARMACEUTICALS USA.,INC-2016SUN00461

PATIENT
  Age: 88 Year
  Sex: Male

DRUGS (1)
  1. IMIQUIMOD CREAM, 5% [Suspect]
     Active Substance: IMIQUIMOD
     Indication: LENTIGO MALIGNA
     Dosage: UNK, DAILY
     Route: 061

REACTIONS (3)
  - Ectropion [Unknown]
  - Erythema [Unknown]
  - Off label use [Unknown]
